FAERS Safety Report 6432853-X (Version None)
Quarter: 2009Q4

REPORT INFORMATION
  Report Type: 
  Country: None (occurrence: None)
  Receive Date: 20091109
  Receipt Date: 20091102
  Transmission Date: 20100525
  Serious: Yes (Hospitalization)
  Sender: FDA-Public Use
  Company Number: B0601909A

PATIENT
  Age: 50 Year
  Sex: Male

DRUGS (12)
  1. AMOXICILLIN AND CLAVULANATE POTASSIUM [Suspect]
     Dosage: 1G THREE TIMES PER DAY
     Route: 048
     Dates: start: 20090426, end: 20090427
  2. TAZOCILLINE [Suspect]
     Indication: URINARY TRACT INFECTION PSEUDOMONAL
     Dosage: 4G THREE TIMES PER DAY
     Route: 042
     Dates: start: 20090428, end: 20090501
  3. COLIMYCIN [Suspect]
     Indication: URINARY TRACT INFECTION PSEUDOMONAL
     Dosage: 3IU6 THREE TIMES PER DAY
     Route: 042
     Dates: start: 20090429, end: 20090502
  4. AUGMENTIN '125' [Concomitant]
     Dosage: 3G PER DAY
     Route: 042
     Dates: start: 20090401, end: 20090425
  5. NOVOMIX [Concomitant]
     Route: 065
  6. MOPRAL [Concomitant]
     Route: 065
  7. SERETIDE [Concomitant]
     Route: 065
  8. BRICANYL [Concomitant]
     Route: 065
  9. ATROVENT [Concomitant]
     Route: 065
  10. VENTOLIN DISKUS [Concomitant]
     Route: 065
  11. DIPROSONE [Concomitant]
     Route: 065
  12. OXYGEN [Concomitant]

REACTIONS (4)
  - C-REACTIVE PROTEIN INCREASED [None]
  - PYREXIA [None]
  - RASH [None]
  - SKIN EXFOLIATION [None]
